FAERS Safety Report 9925861 (Version 3)
Quarter: 2014Q2

REPORT INFORMATION
  Report Type: Report from Study
  Country: US (occurrence: US)
  Receive Date: 20140226
  Receipt Date: 20140423
  Transmission Date: 20141212
  Serious: Yes (Hospitalization)
  Sender: FDA-Public Use
  Company Number: US-ABBVIE-14P-163-1204284-00

PATIENT
  Age: 62 Year
  Sex: Female
  Weight: 83.08 kg

DRUGS (9)
  1. HUMIRA [Suspect]
     Indication: CROHN^S DISEASE
     Dosage: LOADING DOSE
     Route: 058
     Dates: start: 201205, end: 201306
  2. HUMIRA [Suspect]
     Dates: start: 20131120, end: 20131120
  3. HUMIRA [Suspect]
     Dates: start: 20131204, end: 20131204
  4. HUMIRA [Suspect]
     Dates: start: 20131218
  5. LIPITOR [Concomitant]
     Indication: PRODUCT USED FOR UNKNOWN INDICATION
  6. LUNESTA [Concomitant]
     Indication: PRODUCT USED FOR UNKNOWN INDICATION
  7. LEXAPRO [Concomitant]
     Indication: PRODUCT USED FOR UNKNOWN INDICATION
  8. BENICAR [Concomitant]
     Indication: PRODUCT USED FOR UNKNOWN INDICATION
  9. LEVOTHYROXINE [Concomitant]
     Indication: PRODUCT USED FOR UNKNOWN INDICATION

REACTIONS (5)
  - Intestinal obstruction [Recovered/Resolved]
  - Anastomotic leak [Recovered/Resolved]
  - Peritonitis [Recovered/Resolved]
  - Ileostomy closure [Recovered/Resolved]
  - Constipation [Recovered/Resolved]
